FAERS Safety Report 4780696-5 (Version None)
Quarter: 2005Q3

REPORT INFORMATION
  Report Type: 
  Country: None (occurrence: None)
  Receive Date: 20050926
  Receipt Date: 20050916
  Transmission Date: 20060218
  Serious: Yes (Hospitalization, Other)
  Sender: FDA-Public Use
  Company Number: HQWYE509316SEP05

PATIENT
  Age: 53 Year
  Sex: Male

DRUGS (8)
  1. CORDARONE [Suspect]
     Indication: ATRIAL FIBRILLATION
     Dosage: 200 MG TABLET, ORAL
     Route: 048
     Dates: start: 19950101, end: 20041201
  2. DURBIS            (DISOPYRAMIDE) [Suspect]
     Indication: ATRIAL FIBRILLATION
     Dosage: ORAL
     Route: 048
     Dates: start: 19950101, end: 20041201
  3. ISOPTIN [Suspect]
     Indication: ATRIAL FIBRILLATION
     Dosage: ORAL
     Route: 048
     Dates: start: 19950101, end: 20041201
  4. PROSCAR [Concomitant]
  5. WARFARIN SODIUM [Concomitant]
  6. PREDNISOLONE [Concomitant]
  7. SPIRONOLACTONE [Concomitant]
  8. CITODON             (CODEINE PHOSPHATE/PARACETAMOL) [Concomitant]

REACTIONS (6)
  - BEDRIDDEN [None]
  - BONE DISORDER [None]
  - C-REACTIVE PROTEIN INCREASED [None]
  - HYPOKALAEMIA [None]
  - MUSCLE ATROPHY [None]
  - WALKING AID USER [None]
